FAERS Safety Report 9128256 (Version 1)
Quarter: 2013Q1

REPORT INFORMATION
  Report Type: Report from Study
  Country: AU (occurrence: AU)
  Receive Date: 20130125
  Receipt Date: 20130125
  Transmission Date: 20140127
  Serious: Yes (Other)
  Sender: FDA-Public Use
  Company Number: PHHY2012AU103632

PATIENT
  Sex: Male

DRUGS (2)
  1. EXJADE [Suspect]
     Indication: IRON OVERLOAD
     Dosage: 500 MG
     Route: 048
     Dates: start: 20121025
  2. EXJADE [Suspect]
     Dosage: 1000 MG
     Route: 048

REACTIONS (3)
  - Bone marrow failure [Unknown]
  - Diarrhoea [Not Recovered/Not Resolved]
  - Serum ferritin increased [Unknown]
